FAERS Safety Report 4944968-3 (Version None)
Quarter: 2006Q1

REPORT INFORMATION
  Report Type: 
  Country: None (occurrence: None)
  Receive Date: 20060117
  Receipt Date: 20050617
  Transmission Date: 20060701
  Serious: Yes (Hospitalization)
  Sender: FDA-Public Use
  Company Number: A03200501821

PATIENT
  Age: 76 Year
  Sex: Male

DRUGS (3)
  1. PLAVIX [Suspect]
     Indication: COAGULOPATHY
     Dosage: 75 MG QD - ORAL
     Route: 048
     Dates: start: 20010101
  2. COUMADIN [Suspect]
     Indication: COAGULOPATHY
     Dosage: ORAL
     Route: 048
  3. INSULIN [Concomitant]

REACTIONS (3)
  - CEREBROVASCULAR ACCIDENT [None]
  - COAGULOPATHY [None]
  - DYSGEUSIA [None]
